FAERS Safety Report 7726677-0 (Version None)
Quarter: 2011Q3

REPORT INFORMATION
  Report Type: 
  Country: None (occurrence: None)
  Receive Date: 20110902
  Receipt Date: 20110902
  Transmission Date: 20111222
  Serious: Yes (Other)
  Sender: FDA-Public Use
  Company Number: None

PATIENT
  Age: 44 Year
  Sex: Female
  Weight: 86.182 kg

DRUGS (1)
  1. NUBAIN [Suspect]
     Indication: PAIN
     Dosage: UNK.  GIVEN PRIOR TO MRI
     Route: 050
     Dates: start: 20110831, end: 20110831

REACTIONS (33)
  - INCOHERENT [None]
  - NERVOUS SYSTEM DISORDER [None]
  - PRURITUS [None]
  - FEELING HOT [None]
  - VOMITING [None]
  - GAIT DISTURBANCE [None]
  - HYPERACUSIS [None]
  - PUPILS UNEQUAL [None]
  - AMNESIA [None]
  - SENSATION OF HEAVINESS [None]
  - ASTHENIA [None]
  - OEDEMA PERIPHERAL [None]
  - LOSS OF CONSCIOUSNESS [None]
  - DYSARTHRIA [None]
  - DRY MOUTH [None]
  - NAUSEA [None]
  - RESPIRATORY DISORDER [None]
  - PALPITATIONS [None]
  - BALANCE DISORDER [None]
  - TREMOR [None]
  - PAIN [None]
  - DYSSTASIA [None]
  - HYPERSENSITIVITY [None]
  - LOSS OF CONTROL OF LEGS [None]
  - MIOSIS [None]
  - MYALGIA [None]
  - PARAESTHESIA [None]
  - HEADACHE [None]
  - HYPERHIDROSIS [None]
  - CAESAREAN SECTION [None]
  - HYSTERECTOMY [None]
  - VISUAL IMPAIRMENT [None]
  - PAIN IN EXTREMITY [None]
